FAERS Safety Report 5638527-7 (Version None)
Quarter: 2008Q1

REPORT INFORMATION
  Report Type: 
  Country: None (occurrence: None)
  Receive Date: 20080226
  Receipt Date: 20070320
  Transmission Date: 20080703
  Serious: No
  Sender: FDA-Public Use
  Company Number: A0643924A

PATIENT
  Age: 46 Year
  Sex: Female

DRUGS (1)
  1. IMITREX [Suspect]
     Indication: MIGRAINE
     Dosage: 50MG UNKNOWN
     Route: 048

REACTIONS (1)
  - MENOPAUSE [None]
